FAERS Safety Report 13351315 (Version 2)
Quarter: 2017Q1

REPORT INFORMATION
  Report Type: Spontaneous
  Country: BE (occurrence: BE)
  Receive Date: 20170320
  Receipt Date: 20170322
  Transmission Date: 20170429
  Serious: Yes (Life-Threatening, Hospitalization, Other)
  Sender: FDA-Public Use
  Company Number: BE-PFIZER INC-2017107097

PATIENT
  Age: 62 Year
  Sex: Male

DRUGS (4)
  1. AMIODARONE HCL [Suspect]
     Active Substance: AMIODARONE HYDROCHLORIDE
     Indication: SINUS RHYTHM
     Dosage: 200 MG, DAILY
     Route: 048
  2. PREDNISOLONE. [Concomitant]
     Active Substance: PREDNISOLONE
     Dosage: TAPERED TO 30 MG/DAY
  3. PREDNISOLONE. [Concomitant]
     Active Substance: PREDNISOLONE
     Dosage: 40 MG, DAILY
  4. PREDNISOLONE. [Concomitant]
     Active Substance: PREDNISOLONE
     Dosage: 40 MG, DAILY

REACTIONS (1)
  - Hyperthyroidism [Recovered/Resolved]
